FAERS Safety Report 13981854 (Version 1)
Quarter: 2017Q3

REPORT INFORMATION
  Report Type: Report from Study
  Country: None (occurrence: NZ)
  Receive Date: 20170918
  Receipt Date: 20170918
  Transmission Date: 20171128
  Serious: Yes (Hospitalization, Other)
  Sender: FDA-Public Use
  Company Number: NZ-ABBVIE-17K-118-2086812-00

PATIENT
  Sex: Female

DRUGS (1)
  1. HUMIRA [Suspect]
     Active Substance: ADALIMUMAB
     Indication: RHEUMATOID ARTHRITIS
     Route: 058
     Dates: start: 20130804, end: 201708

REACTIONS (8)
  - Diarrhoea [Recovering/Resolving]
  - Pain [Unknown]
  - Mobility decreased [Unknown]
  - Dehydration [Unknown]
  - Pancreatic failure [Unknown]
  - Scoliosis [Unknown]
  - General physical health deterioration [Unknown]
  - Dysphagia [Unknown]
